FAERS Safety Report 18438972 (Version 4)
Quarter: 2021Q1

REPORT INFORMATION
  Report Type: Report from Study
  Country: None (occurrence: BE)
  Receive Date: 20201029
  Receipt Date: 20210321
  Transmission Date: 20210419
  Serious: Yes (Hospitalization)
  Sender: FDA-Public Use
  Company Number: BE-ABBVIE-20K-013-3605700-00

PATIENT
  Age: 73 Year
  Sex: Female
  Weight: 61 kg

DRUGS (8)
  1. DUODOPA [Suspect]
     Active Substance: CARBIDOPA\LEVODOPA
     Dosage: MD 11ML, CD 4.4ML/HR DURING 16HRS, ED 2ML
     Route: 050
     Dates: start: 20191030, end: 20200204
  2. DUODOPA [Suspect]
     Active Substance: CARBIDOPA\LEVODOPA
     Dosage: MD 12ML, CD 4.6ML/HR DURING 16HRS, ED 2ML
     Route: 050
     Dates: start: 20210316
  3. FLUDROCORTISONE [Concomitant]
     Active Substance: FLUDROCORTISONE
     Indication: ORTHOSTATIC HYPOTENSION
     Route: 048
  4. DUODOPA [Suspect]
     Active Substance: CARBIDOPA\LEVODOPA
     Dosage: MD 11ML, CD 4.6ML/HR DURING 16HRS, ED 2ML
     Route: 050
     Dates: start: 20200204, end: 20210316
  5. PROLOPA HBS [Concomitant]
     Active Substance: BENSERAZIDE\LEVODOPA
     Indication: PARKINSON^S DISEASE
     Dosage: FORM STRENGTH: 100MG/25MG; UNIT DOSE: 3 CAPSULE
     Route: 048
  6. MIRAPEXIN [Concomitant]
     Active Substance: PRAMIPEXOLE
     Indication: PARKINSON^S DISEASE
     Dosage: STOPPED PRIOR TO DUODOPA THERAPY
     Route: 048
  7. DUODOPA [Suspect]
     Active Substance: CARBIDOPA\LEVODOPA
     Indication: PARKINSON^S DISEASE
     Dosage: UNKNOWN DOSAGES
     Route: 050
     Dates: start: 20190408, end: 20191030
  8. MIRAPEXIN [Concomitant]
     Active Substance: PRAMIPEXOLE
     Route: 048
     Dates: start: 202010

REACTIONS (5)
  - Weight decreased [Unknown]
  - Orthostatic hypotension [Recovering/Resolving]
  - Device dislocation [Recovered/Resolved]
  - Abdominal pain [Unknown]
  - Gastrointestinal disorder [Not Recovered/Not Resolved]
